FAERS Safety Report 24066469 (Version 1)
Quarter: 2024Q3

REPORT INFORMATION
  Report Type: Spontaneous
  Country: US (occurrence: None)
  Receive Date: 20240708
  Receipt Date: 20240708
  Transmission Date: 20241017
  Serious: Yes (Disabling)
  Sender: Public
  Company Number: None

PATIENT
  Age: 63 Year
  Sex: Male
  Weight: 126.9 kg

DRUGS (16)
  1. LEVOFLOXACIN [Suspect]
     Active Substance: LEVOFLOXACIN
     Indication: Pneumonia
     Dosage: OTHER QUANTITY : 10 TABLET(S);?FREQUENCY : DAILY;?
     Route: 048
     Dates: start: 20240621, end: 20240624
  2. AMBIEN [Concomitant]
     Active Substance: ZOLPIDEM TARTRATE
  3. LOPRESSOR [Concomitant]
     Active Substance: METOPROLOL TARTRATE
  4. TRIBENZOR [Concomitant]
     Active Substance: AMLODIPINE BESYLATE\HYDROCHLOROTHIAZIDE\OLMESARTAN MEDOXOMIL
  5. METFORMIN HYDROCHLORIDE [Concomitant]
     Active Substance: METFORMIN HYDROCHLORIDE
  6. XIFAXAN [Concomitant]
     Active Substance: RIFAXIMIN
  7. lactulsoin [Concomitant]
  8. ACETAMINOPHEN\HYDROCODONE BITARTRATE [Concomitant]
     Active Substance: ACETAMINOPHEN\HYDROCODONE BITARTRATE
  9. bupenorphin [Concomitant]
  10. METOPROLOL [Concomitant]
     Active Substance: METOPROLOL
  11. VITAMIN D3 [Concomitant]
     Active Substance: CHOLECALCIFEROL
  12. POTASSIUM [Concomitant]
     Active Substance: POTASSIUM
  13. vitamin 52 [Concomitant]
  14. mk7 [Concomitant]
  15. mens multivitamin [Concomitant]
  16. B1 [Concomitant]

REACTIONS (10)
  - Pain in extremity [None]
  - Pain in extremity [None]
  - Arthralgia [None]
  - Pain in extremity [None]
  - Pain in extremity [None]
  - Pain in extremity [None]
  - Product prescribing issue [None]
  - Arthralgia [None]
  - Muscle tightness [None]
  - Dysstasia [None]

NARRATIVE: CASE EVENT DATE: 20240621
